FAERS Safety Report 9920108 (Version 2)
Quarter: 2014Q2

REPORT INFORMATION
  Report Type: Spontaneous
  Country: US (occurrence: US)
  Receive Date: 20140224
  Receipt Date: 20140408
  Transmission Date: 20141212
  Serious: No
  Sender: FDA-Public Use
  Company Number: US-009507513-1402USA008691

PATIENT
  Age: 71 Year
  Sex: Female
  Weight: 72.56 kg

DRUGS (4)
  1. OXYTROL FOR WOMEN [Suspect]
     Indication: URGE INCONTINENCE
     Dosage: UNK UNK, UNKNOWN
     Route: 062
     Dates: start: 20140209, end: 20140210
  2. VESICARE [Suspect]
     Indication: URGE INCONTINENCE
     Dosage: 5 MG, UNK
     Dates: end: 20140209
  3. METHOTREXATE [Concomitant]
     Indication: PRODUCT USED FOR UNKNOWN INDICATION
     Dosage: UNK, UNKNOWN
  4. LEVOTHYROXINE SODIUM [Concomitant]
     Indication: HYPOTHYROIDISM
     Dosage: UNK, UNKNOWN

REACTIONS (9)
  - Dehydration [Unknown]
  - Dizziness [Unknown]
  - Abdominal discomfort [Unknown]
  - Application site discomfort [Not Recovered/Not Resolved]
  - Application site vesicles [Unknown]
  - Thirst [Unknown]
  - Application site rash [Not Recovered/Not Resolved]
  - Rash pruritic [Recovered/Resolved]
  - Rash erythematous [Recovering/Resolving]
